FAERS Safety Report 19713775 (Version 2)
Quarter: 2021Q3

REPORT INFORMATION
  Report Type: Report from Study
  Country: IE (occurrence: IE)
  Receive Date: 20210817
  Receipt Date: 20210819
  Transmission Date: 20211014
  Serious: Yes (Hospitalization)
  Sender: FDA-Public Use
  Company Number: IE-JNJFOC-20210744250

PATIENT
  Age: 41 Year
  Sex: Female

DRUGS (5)
  1. MAGNESIUM VERLA [Concomitant]
     Active Substance: MAGNESIUM
  2. BISOPROLOL [Concomitant]
     Active Substance: BISOPROLOL
  3. STELARA [Suspect]
     Active Substance: USTEKINUMAB
     Indication: CROHN^S DISEASE
     Route: 042
     Dates: start: 20210222
  4. STELARA [Suspect]
     Active Substance: USTEKINUMAB
     Route: 042
     Dates: start: 20210809
  5. SLOW K [Concomitant]
     Active Substance: POTASSIUM CHLORIDE

REACTIONS (5)
  - Product use issue [Unknown]
  - Rash [Recovered/Resolved]
  - Nephrolithiasis [Recovered/Resolved]
  - Off label use [Unknown]
  - Dysphonia [Unknown]

NARRATIVE: CASE EVENT DATE: 2021
